FAERS Safety Report 9827629 (Version 1)
Quarter: 2014Q1

REPORT INFORMATION
  Report Type: Spontaneous
  Country: ZA (occurrence: ZA)
  Receive Date: 20140117
  Receipt Date: 20140117
  Transmission Date: 20141002
  Serious: Yes (Life-Threatening, Hospitalization, Other)
  Sender: FDA-Public Use
  Company Number: ZA-PFIZER INC-2014012518

PATIENT
  Age: 21 Year
  Sex: Female

DRUGS (4)
  1. HYDROCORTISONE SODIUM SUCCINATE [Suspect]
     Dosage: UNK
     Route: 042
  2. HYDROCORTISONE SODIUM SUCCINATE [Suspect]
     Dosage: 50 MG, ONCE
     Route: 042
  3. HYDROCORTISONE SODIUM SUCCINATE [Suspect]
     Dosage: 150 MG, ONCE
     Route: 042
  4. HEXOPRENALINE [Suspect]
     Indication: ASTHMA
     Dosage: UNK, WET AEROSOL INHALATION
     Route: 055

REACTIONS (4)
  - Respiratory arrest [Recovered/Resolved]
  - Drug hypersensitivity [Recovering/Resolving]
  - Bronchospasm [Recovered/Resolved]
  - Cough [Recovered/Resolved]
